FAERS Safety Report 8924251 (Version 2)
Quarter: 2012Q4

REPORT INFORMATION
  Report Type: 
  Country: US (occurrence: US)
  Receive Date: 20121126
  Receipt Date: 20121221
  Transmission Date: 20130627
  Serious: Yes (Death)
  Sender: FDA-Public Use
  Company Number: US-BAYER-2012-122426

PATIENT
  Sex: Female

DRUGS (1)
  1. BAYER GENUINE ASPIRIN ORIGINAL STRENGTH [Suspect]
     Indication: HEADACHE
     Dosage: UNK, QD
     Route: 048
     Dates: end: 1977

REACTIONS (3)
  - Death [Fatal]
  - Incorrect drug administration duration [None]
  - Incorrect dose administered [None]
